FAERS Safety Report 11021799 (Version 2)
Quarter: 2015Q2

REPORT INFORMATION
  Report Type: Spontaneous
  Country: DE (occurrence: DE)
  Receive Date: 20150413
  Receipt Date: 20150514
  Transmission Date: 20150821
  Serious: Yes (Hospitalization)
  Sender: FDA-Public Use
  Company Number: DE-PFIZER INC-2015126029

PATIENT
  Age: 72 Year
  Sex: Female

DRUGS (9)
  1. IBUHEXAL [Suspect]
     Active Substance: IBUPROFEN
     Indication: PAIN
     Dosage: 800 MG, AS NEEDED
     Route: 065
     Dates: end: 20150324
  2. XARELTO [Suspect]
     Active Substance: RIVAROXABAN
     Dosage: UNK, BID (IN THE MORNING AND IN THE EVENING)
     Route: 065
     Dates: end: 20150324
  3. LERCADIP /01366401/ [Suspect]
     Active Substance: LERCANIDIPINE
     Dosage: UNK
     Route: 065
     Dates: end: 20150324
  4. PANTOPRAZOLE [Suspect]
     Active Substance: PANTOPRAZOLE SODIUM
     Dosage: UNK
     Route: 065
     Dates: end: 20150324
  5. DELIX /00885601/ [Suspect]
     Active Substance: RAMIPRIL
     Dosage: UNK
     Route: 065
     Dates: end: 20150324
  6. DELIX PLUS [Suspect]
     Active Substance: HYDROCHLOROTHIAZIDE\RAMIPRIL
     Dosage: UNK
     Route: 065
     Dates: end: 20150324
  7. METOHEXAL [Suspect]
     Active Substance: METOPROLOL SUCCINATE
     Dosage: UNK UNK, BID (ONE IN THE MORNING, ONE IN THE EVENING)
     Route: 065
     Dates: end: 20150324
  8. GODAMED [Suspect]
     Active Substance: ASPIRIN
     Dosage: UNK
     Route: 065
     Dates: end: 20150324
  9. INEGY [Suspect]
     Active Substance: EZETIMIBE\SIMVASTATIN
     Dosage: UNK
     Route: 065
     Dates: end: 20150324

REACTIONS (2)
  - Hypertension [Recovering/Resolving]
  - Condition aggravated [None]
